FAERS Safety Report 5834611-3 (Version None)
Quarter: 2008Q3

REPORT INFORMATION
  Report Type: 
  Country: None (occurrence: None)
  Receive Date: 20080805
  Receipt Date: 20080723
  Transmission Date: 20090109
  Serious: Yes (Hospitalization)
  Sender: FDA-Public Use
  Company Number: HK-ELI_LILLY_AND_COMPANY-HK200807003317

PATIENT
  Age: 72 Year
  Sex: Female

DRUGS (1)
  1. EVISTA [Suspect]
     Indication: OSTEOPOROSIS
     Dosage: 60 MG, UNKNOWN
     Route: 065
     Dates: start: 20040617, end: 20080101

REACTIONS (1)
  - PERIPHERAL EMBOLISM [None]
